FAERS Safety Report 9022108 (Version 1)
Quarter: 2013Q1

REPORT INFORMATION
  Report Type: Spontaneous
  Country: IT (occurrence: IT)
  Receive Date: 20130118
  Receipt Date: 20130118
  Transmission Date: 20140127
  Serious: Yes (Hospitalization)
  Sender: FDA-Public Use
  Company Number: IT-TEVA-380622ISR

PATIENT
  Age: 64 None
  Sex: Female

DRUGS (2)
  1. TRAMADOLO [Suspect]
     Indication: TOOTHACHE
     Dosage: 37.5 MILLIGRAM DAILY;
     Route: 048
     Dates: start: 20121115, end: 20121116
  2. PARACETAMOLO [Concomitant]
     Dosage: 325 MILLIGRAM DAILY;

REACTIONS (2)
  - Confusional state [Recovered/Resolved]
  - Vomiting [Recovered/Resolved]
